FAERS Safety Report 17024145 (Version 4)
Quarter: 2019Q4

REPORT INFORMATION
  Report Type: Spontaneous
  Country: US (occurrence: US)
  Receive Date: 20191113
  Receipt Date: 20191211
  Transmission Date: 20200122
  Serious: Yes (Hospitalization)
  Sender: FDA-Public Use
  Company Number: US-KARYOPHARM-2019KPT000703

PATIENT

DRUGS (18)
  1. XPOVIO [Suspect]
     Active Substance: SELINEXOR
     Dosage: 40 MG, 2X/WEEK
     Route: 048
  2. SERTRALINE [Concomitant]
     Active Substance: SERTRALINE HYDROCHLORIDE
     Indication: PRODUCT USED FOR UNKNOWN INDICATION
  3. DIPHENOXYLATE HCL + ATROPINE SULFATE [Concomitant]
     Active Substance: ATROPINE SULFATE\DIPHENOXYLATE HYDROCHLORIDE
     Indication: PRODUCT USED FOR UNKNOWN INDICATION
  4. POTASSIUM [Concomitant]
     Active Substance: POTASSIUM
     Indication: PRODUCT USED FOR UNKNOWN INDICATION
  5. CARVEDILOL. [Concomitant]
     Active Substance: CARVEDILOL
     Indication: HYPERTENSION
  6. METFORMIN [Concomitant]
     Active Substance: METFORMIN HYDROCHLORIDE
     Indication: PRODUCT USED FOR UNKNOWN INDICATION
  7. ZOFRAN [Concomitant]
     Active Substance: ONDANSETRON HYDROCHLORIDE
     Indication: PRODUCT USED FOR UNKNOWN INDICATION
  8. CHOLESTYRAMINE LIGHT [Concomitant]
     Active Substance: CHOLESTYRAMINE
     Indication: PRODUCT USED FOR UNKNOWN INDICATION
  9. XPOVIO [Suspect]
     Active Substance: SELINEXOR
     Indication: PLASMA CELL MYELOMA
     Dosage: 80 MG, 2X/WEEK
     Route: 048
     Dates: start: 20191020
  10. XPOVIO [Suspect]
     Active Substance: SELINEXOR
     Dosage: 80 UNK
     Route: 048
     Dates: start: 20191020
  11. MAGNESIUM [Concomitant]
     Active Substance: MAGNESIUM
     Indication: PRODUCT USED FOR UNKNOWN INDICATION
  12. PEPCID [Concomitant]
     Active Substance: FAMOTIDINE
     Indication: PRODUCT USED FOR UNKNOWN INDICATION
  13. DECADRON [Concomitant]
     Active Substance: DEXAMETHASONE
     Indication: PRODUCT USED FOR UNKNOWN INDICATION
  14. XPOVIO [Suspect]
     Active Substance: SELINEXOR
     Dosage: 160 MG, WEEKLY
     Dates: start: 20191009, end: 20191020
  15. XARELTO [Concomitant]
     Active Substance: RIVAROXABAN
     Indication: PRODUCT USED FOR UNKNOWN INDICATION
  16. CALCIUM DISODIUM VERSENATE [Concomitant]
     Active Substance: EDETATE CALCIUM DISODIUM
     Indication: PRODUCT USED FOR UNKNOWN INDICATION
  17. MULTIVITAMIN [Concomitant]
     Active Substance: VITAMINS
     Indication: PRODUCT USED FOR UNKNOWN INDICATION
  18. FLUCONAZOLE. [Concomitant]
     Active Substance: FLUCONAZOLE
     Indication: PRODUCT USED FOR UNKNOWN INDICATION

REACTIONS (8)
  - Urinary tract infection [Not Recovered/Not Resolved]
  - Dehydration [Recovered/Resolved]
  - Neutropenia [Not Recovered/Not Resolved]
  - Vomiting [Not Recovered/Not Resolved]
  - Hypertension [Unknown]
  - Hypotension [Recovered/Resolved]
  - Nausea [Not Recovered/Not Resolved]
  - Pyrexia [Unknown]

NARRATIVE: CASE EVENT DATE: 20191017
